FAERS Safety Report 6783929-9 (Version None)
Quarter: 2010Q2

REPORT INFORMATION
  Report Type: 
  Country: None (occurrence: None)
  Receive Date: 20100622
  Receipt Date: 20100615
  Transmission Date: 20101027
  Serious: Yes (Other)
  Sender: FDA-Public Use
  Company Number: US-AMGEN-KDC414293

PATIENT
  Sex: Female
  Weight: 104 kg

DRUGS (14)
  1. DENOSUMAB [Suspect]
     Indication: METASTASES TO BONE
     Route: 058
     Dates: start: 20090810, end: 20091005
  2. ZOMETA [Suspect]
     Dates: start: 20061229, end: 20090713
  3. AVASTIN [Suspect]
     Dates: start: 20090701, end: 20091102
  4. TAXOTERE [Concomitant]
     Dates: start: 20090701, end: 20091102
  5. PROTONIX [Concomitant]
  6. CALCIUM CARBONATE [Concomitant]
     Route: 048
  7. TAMOXIFEN [Concomitant]
  8. ENALAPRIL MALEATE [Concomitant]
  9. LOVENOX [Concomitant]
     Route: 058
     Dates: start: 20091101
  10. FASLODEX [Concomitant]
     Route: 030
     Dates: start: 20091101, end: 20100222
  11. FERRIC CITRATE [Concomitant]
  12. CELEXA [Concomitant]
  13. TRAZODONE HYDROCHLORIDE [Concomitant]
  14. COUMADIN [Concomitant]
     Route: 048
     Dates: end: 20091130

REACTIONS (1)
  - OSTEONECROSIS OF JAW [None]
